FAERS Safety Report 8074684-3 (Version None)
Quarter: 2012Q1

REPORT INFORMATION
  Report Type: 
  Country: None (occurrence: None)
  Receive Date: 20120126
  Receipt Date: 20120116
  Transmission Date: 20120608
  Serious: Yes (Other)
  Sender: FDA-Public Use
  Company Number: US-RB-036530-12

PATIENT
  Age: 41 Year
  Sex: Female

DRUGS (1)
  1. SUBOXONE [Suspect]
     Indication: PRODUCT USED FOR UNKNOWN INDICATION
     Dosage: UNKNOWN DOSE
     Route: 065

REACTIONS (5)
  - BACK PAIN [None]
  - INSOMNIA [None]
  - SUBSTANCE ABUSE [None]
  - VISION BLURRED [None]
  - CONVULSION [None]
